FAERS Safety Report 20672423 (Version 1)
Quarter: 2022Q2

REPORT INFORMATION
  Report Type: Spontaneous
  Country: US (occurrence: US)
  Receive Date: 20220405
  Receipt Date: 20220405
  Transmission Date: 20220721
  Serious: Yes (Hospitalization, Other)
  Sender: FDA-Public Use
  Company Number: US-ALKEM LABORATORIES LIMITED-US-ALKEM-2022-02664

PATIENT
  Age: 65 Year
  Sex: Female

DRUGS (1)
  1. HYDRALAZINE HYDROCHLORIDE [Suspect]
     Active Substance: HYDRALAZINE HYDROCHLORIDE
     Indication: Hypertension
     Dosage: DOSE UP-TITRATED TO 50 MG TWICE PER DAY
     Route: 065

REACTIONS (1)
  - Acute hepatic failure [Unknown]
